FAERS Safety Report 6661720-1 (Version None)
Quarter: 2010Q1

REPORT INFORMATION
  Report Type: 
  Country: None (occurrence: None)
  Receive Date: 20100331
  Receipt Date: 20090506
  Transmission Date: 20100710
  Serious: Yes (Hospitalization)
  Sender: FDA-Public Use
  Company Number: US-BRISTOL-MYERS SQUIBB COMPANY-14614606

PATIENT
  Sex: Male

DRUGS (4)
  1. ERBITUX [Suspect]
  2. CARBOPLATIN [Suspect]
  3. TAXOTERE [Suspect]
  4. RADIATION THERAPY [Suspect]

REACTIONS (2)
  - RASH [None]
  - SEPSIS [None]
